FAERS Safety Report 4894748-2 (Version None)
Quarter: 2006Q1

REPORT INFORMATION
  Report Type: 
  Country: None (occurrence: None)
  Receive Date: 20060126
  Receipt Date: 20060126
  Transmission Date: 20060701
  Serious: Yes (Other)
  Sender: FDA-Public Use
  Company Number: None

PATIENT
  Age: 51 Year
  Sex: Female

DRUGS (1)
  1. OXYMETAZOLINE HYDROCHLORIDE SPRAY [Suspect]
     Indication: NASAL CONGESTION
     Dosage: 2 OR 3 SPRAYS IN EACH NOSTRIL BID -USED ONCE NASAL
     Route: 045
     Dates: start: 20060124, end: 20060124

REACTIONS (6)
  - BURNING SENSATION [None]
  - DRUG INEFFECTIVE [None]
  - HEADACHE [None]
  - NASAL DISCOMFORT [None]
  - PHARMACEUTICAL PRODUCT COMPLAINT [None]
  - SELF-MEDICATION [None]
